FAERS Safety Report 5766597-4 (Version None)
Quarter: 2008Q2

REPORT INFORMATION
  Report Type: 
  Country: None (occurrence: None)
  Receive Date: 20080610
  Receipt Date: 20080610
  Transmission Date: 20081010
  Serious: Yes (Other)
  Sender: FDA-Public Use
  Company Number: None

PATIENT
  Age: 53 Year
  Sex: Female
  Weight: 53.0709 kg

DRUGS (1)
  1. FOSAMAX [Suspect]
     Indication: OSTEOPENIA

REACTIONS (2)
  - ARTHRALGIA [None]
  - MYALGIA [None]
